FAERS Safety Report 25814643 (Version 1)
Quarter: 2025Q3

REPORT INFORMATION
  Report Type: Report from Study
  Country: CO (occurrence: CO)
  Receive Date: 20250917
  Receipt Date: 20250917
  Transmission Date: 20251021
  Serious: Yes (Hospitalization)
  Sender: NOVARTIS
  Company Number: CO-002147023-NVSC2025CO103452

PATIENT
  Age: 61 Year
  Sex: Male
  Weight: 92 kg

DRUGS (4)
  1. COSENTYX [Suspect]
     Active Substance: SECUKINUMAB
     Indication: Ankylosing spondylitis
     Dosage: 300 MG, QMO
     Route: 058
     Dates: start: 20230908
  2. COSENTYX [Suspect]
     Active Substance: SECUKINUMAB
     Dosage: 300 MG, QMO
     Route: 058
     Dates: start: 20250414
  3. COSENTYX [Suspect]
     Active Substance: SECUKINUMAB
     Dosage: 300 MG, QMO
     Route: 058
     Dates: start: 20250801
  4. COSENTYX [Suspect]
     Active Substance: SECUKINUMAB
     Dosage: 300 MG, QMO
     Route: 058
     Dates: start: 20250902

REACTIONS (15)
  - Decreased immune responsiveness [Recovered/Resolved]
  - Blister [Not Recovered/Not Resolved]
  - Gingival bleeding [Recovered/Resolved]
  - Acne [Not Recovered/Not Resolved]
  - Hypersensitivity [Unknown]
  - Pruritus [Recovered/Resolved]
  - Musculoskeletal stiffness [Recovered/Resolved]
  - Feeling of despair [Recovered/Resolved]
  - Swelling [Recovered/Resolved]
  - Rash [Recovered/Resolved]
  - Ankylosing spondylitis [Not Recovered/Not Resolved]
  - Inflammation [Unknown]
  - Wound [Unknown]
  - Infection [Recovered/Resolved]
  - Diarrhoea [Recovered/Resolved]

NARRATIVE: CASE EVENT DATE: 20250416
